FAERS Safety Report 19872679 (Version 1)
Quarter: 2021Q3

REPORT INFORMATION
  Report Type: Spontaneous
  Country: US (occurrence: US)
  Receive Date: 20210922
  Receipt Date: 20210922
  Transmission Date: 20211014
  Serious: Yes (Hospitalization, Other)
  Sender: FDA-Public Use
  Company Number: US-JNJFOC-20210926284

PATIENT
  Age: 26 Year
  Sex: Female
  Weight: 67.19 kg

DRUGS (7)
  1. ZOFRAN [Concomitant]
     Active Substance: ONDANSETRON HYDROCHLORIDE
     Indication: NAUSEA
     Route: 048
  2. SYNTHROID [Concomitant]
     Active Substance: LEVOTHYROXINE SODIUM
     Route: 048
  3. FOLATE [Concomitant]
     Active Substance: FOLATE SODIUM
     Route: 048
  4. REMICADE [Suspect]
     Active Substance: INFLIXIMAB
     Indication: CROHN^S DISEASE
     Route: 042
     Dates: start: 2019
  5. IRON [Concomitant]
     Active Substance: IRON
     Route: 048
  6. VITAMIN D [ERGOCALCIFEROL] [Concomitant]
     Active Substance: ERGOCALCIFEROL
     Route: 048
  7. RENFLEXIS [Suspect]
     Active Substance: INFLIXIMAB-ABDA
     Indication: COLITIS ULCERATIVE
     Dates: start: 20210402

REACTIONS (6)
  - Therapeutic product effect decreased [Unknown]
  - Crohn^s disease [Unknown]
  - Cervical dysplasia [Unknown]
  - Exposure during pregnancy [Unknown]
  - Drug hypersensitivity [Recovering/Resolving]
  - Abortion spontaneous [Unknown]

NARRATIVE: CASE EVENT DATE: 2019
